FAERS Safety Report 11334056 (Version 1)
Quarter: 2015Q3

REPORT INFORMATION
  Report Type: Spontaneous
  Country: US (occurrence: US)
  Receive Date: 20150803
  Receipt Date: 20150803
  Transmission Date: 20151125
  Serious: Yes (Other)
  Sender: FDA-Public Use
  Company Number: US-SA-2015SA045250

PATIENT
  Sex: Male

DRUGS (1)
  1. AMBIEN [Suspect]
     Active Substance: ZOLPIDEM TARTRATE
     Route: 048

REACTIONS (5)
  - Drug withdrawal syndrome [Unknown]
  - Memory impairment [Unknown]
  - Drug dependence [Unknown]
  - Feeling abnormal [Unknown]
  - Wrong technique in product usage process [Unknown]
